FAERS Safety Report 8536349-0 (Version None)
Quarter: 2012Q3

REPORT INFORMATION
  Report Type: 
  Country: None (occurrence: None)
  Receive Date: 20120712
  Receipt Date: 20120702
  Transmission Date: 20120928
  Serious: Yes (Hospitalization)
  Sender: FDA-Public Use
  Company Number: DSA_58277_2012

PATIENT
  Sex: Female

DRUGS (5)
  1. ASPIRIN [Concomitant]
  2. DILTIAZEM HYDROCHLORIDE [Suspect]
     Indication: MYOCARDIAL ISCHAEMIA
     Dosage: (60 MG BID ORAL)
     Route: 048
     Dates: start: 20120101, end: 20120505
  3. REMERON [Concomitant]
  4. ENALAPRIL MALEATE [Suspect]
     Dosage: (50 MG QD ORAL)
     Route: 048
     Dates: start: 20120101, end: 20120505
  5. DERMATRANSE /00003201/ [Concomitant]

REACTIONS (6)
  - HYPONATRAEMIA [None]
  - ISCHAEMIA [None]
  - HYPERKALAEMIA [None]
  - ATRIAL FIBRILLATION [None]
  - RENAL FAILURE ACUTE [None]
  - TOXICITY TO VARIOUS AGENTS [None]
